FAERS Safety Report 6362275-1 (Version None)
Quarter: 2009Q3

REPORT INFORMATION
  Report Type: 
  Country: None (occurrence: None)
  Receive Date: 20090918
  Receipt Date: 20090828
  Transmission Date: 20100115
  Serious: No
  Sender: FDA-Public Use
  Company Number: US-ABBOTT-09P-163-0589131-00

PATIENT
  Sex: Female
  Weight: 52.21 kg

DRUGS (9)
  1. HUMIRA [Suspect]
     Indication: ANKYLOSING SPONDYLITIS
     Route: 058
     Dates: start: 20070101
  2. HUMIRA [Suspect]
     Indication: CROHN'S DISEASE
     Route: 058
     Dates: start: 20070101
  3. HUMIRA [Suspect]
     Dates: start: 20080901
  4. METHOTREXATE [Concomitant]
     Indication: DRUG USE FOR UNKNOWN INDICATION
  5. RESTORIL [Concomitant]
     Indication: DRUG USE FOR UNKNOWN INDICATION
     Dosage: ALTERNATES WITH AMBIEN
  6. AMBIEN [Concomitant]
     Indication: DRUG USE FOR UNKNOWN INDICATION
     Dosage: ALTERNATES WITH RESTORIL
  7. NEURONTIN [Concomitant]
     Indication: RESTLESS LEGS SYNDROME
  8. NEURONTIN [Concomitant]
     Indication: PAIN
  9. ACTIVELLA [Concomitant]
     Indication: HORMONE REPLACEMENT THERAPY

REACTIONS (10)
  - CROHN'S DISEASE [None]
  - DRUG DOSE OMISSION [None]
  - INJECTION SITE ERYTHEMA [None]
  - INJECTION SITE HAEMORRHAGE [None]
  - INJECTION SITE MASS [None]
  - INJECTION SITE PAIN [None]
  - MUSCULOSKELETAL STIFFNESS [None]
  - PAIN [None]
  - SKIN DISCOLOURATION [None]
  - THYROID NEOPLASM [None]
